FAERS Safety Report 4307774-9 (Version None)
Quarter: 2004Q1

REPORT INFORMATION
  Report Type: 
  Country: None (occurrence: None)
  Receive Date: 20040225
  Receipt Date: 20030318
  Transmission Date: 20041129
  Serious: Yes (Disabling)
  Sender: FDA-Public Use
  Company Number: WAES 0303USA01810

PATIENT
  Age: 64 Year
  Sex: Male

DRUGS (5)
  1. ZOCOR [Suspect]
     Dosage: 40 MG/DAILY/PO
     Route: 048
  2. AGGRENOX [Concomitant]
  3. COZAAR [Concomitant]
  4. IMDUR [Concomitant]
  5. NORVASC [Concomitant]

REACTIONS (1)
  - MYALGIA [None]
